FAERS Safety Report 8384629-4 (Version None)
Quarter: 2012Q2

REPORT INFORMATION
  Report Type: 
  Country: None (occurrence: None)
  Receive Date: 20120524
  Receipt Date: 20120515
  Transmission Date: 20120825
  Serious: Yes (Hospitalization, Other)
  Sender: FDA-Public Use
  Company Number: US-CELGENEUS-163-21880-11070846

PATIENT
  Sex: Male
  Weight: 129.84 kg

DRUGS (9)
  1. LASIX [Concomitant]
     Route: 065
  2. REVLIMID [Suspect]
     Indication: MULTIPLE MYELOMA
     Dosage: 10 MILLIGRAM
     Route: 048
     Dates: start: 20101228, end: 20110323
  3. COREG [Concomitant]
     Dosage: 25
     Route: 065
  4. REVLIMID [Suspect]
     Dosage: 25 MILLIGRAM
     Route: 048
     Dates: start: 20110401, end: 20110101
  5. REVLIMID [Suspect]
     Dosage: 25 MILLIGRAM
     Route: 048
     Dates: start: 20110722, end: 20111104
  6. COUMADIN [Concomitant]
     Route: 065
  7. POTASSIUM CHLORIDE [Concomitant]
     Route: 065
  8. ASPIRIN [Concomitant]
     Dosage: LOW DOSE
     Route: 065
  9. VICODIN [Concomitant]
     Route: 065

REACTIONS (3)
  - DEEP VEIN THROMBOSIS [None]
  - APPENDICITIS [None]
  - UMBILICAL HERNIA [None]
